FAERS Safety Report 10254135 (Version 12)
Quarter: 2016Q4

REPORT INFORMATION
  Report Type: Spontaneous
  Country: US (occurrence: US)
  Receive Date: 20140624
  Receipt Date: 20161221
  Transmission Date: 20170206
  Serious: Yes (Other)
  Sender: FDA-Public Use
  Company Number: US-009507513-1406USA009732

PATIENT
  Sex: Female
  Weight: 72.56 kg

DRUGS (1)
  1. IMPLANON [Suspect]
     Active Substance: ETONOGESTREL
     Indication: CONTRACEPTION
     Dosage: ONE ROD ONCE (ALSO REPORTED AS 1 ROD/3 YEARS)
     Route: 059
     Dates: start: 20110316

REACTIONS (11)
  - Complication associated with device [Recovered/Resolved]
  - Incorrect drug administration duration [Unknown]
  - Migration of implanted drug [Recovered/Resolved]
  - Device difficult to use [Not Recovered/Not Resolved]
  - Amenorrhoea [Unknown]
  - Female sterilisation [Unknown]
  - Breast pain [Recovered/Resolved]
  - Pain [Unknown]
  - Complication associated with device [Recovered/Resolved]
  - Weight increased [Unknown]
  - Complication of device removal [Unknown]

NARRATIVE: CASE EVENT DATE: 20110316
